FAERS Safety Report 14753286 (Version 1)
Quarter: 2018Q2

REPORT INFORMATION
  Report Type: Report from Study
  Country: MX (occurrence: MX)
  Receive Date: 20180412
  Receipt Date: 20180412
  Transmission Date: 20180711
  Serious: Yes (Hospitalization)
  Sender: FDA-Public Use
  Company Number: PHHY2018MX058929

PATIENT
  Sex: Male

DRUGS (2)
  1. TRILEPTAL [Suspect]
     Active Substance: OXCARBAZEPINE
     Indication: ATTENTION DEFICIT/HYPERACTIVITY DISORDER
     Dosage: 1.5 DF, QD
     Route: 048
  2. KRIADEX [Concomitant]
     Indication: ANXIETY
     Dosage: 1 DF, QD (10 YEARS AGO APPROXIMATELY)
     Route: 065

REACTIONS (7)
  - Drug prescribing error [Not Recovered/Not Resolved]
  - Gastric perforation [Recovered/Resolved with Sequelae]
  - Amnesia [Not Recovered/Not Resolved]
  - Mood altered [Not Recovered/Not Resolved]
  - Hyperglycaemia [Recovered/Resolved with Sequelae]
  - Laboratory test abnormal [Unknown]
  - Product use in unapproved indication [Not Recovered/Not Resolved]
